FAERS Safety Report 10362112 (Version 2)
Quarter: 2014Q3

REPORT INFORMATION
  Report Type: Spontaneous
  Country: JP (occurrence: JP)
  Receive Date: 20140805
  Receipt Date: 20140805
  Transmission Date: 20150326
  Serious: Yes (Other)
  Sender: FDA-Public Use
  Company Number: JP-SA-2013-08263

PATIENT
  Age: 50 Year
  Sex: Male

DRUGS (1)
  1. BCG FOR IMMUNOTHERAPY [Suspect]
     Active Substance: BCG VACCINE
     Indication: BLADDER CANCER
     Dosage: START THERAPY DATE TEXT : NOT REPORTED?DAILY DOSE TEXT : NOT REPORTED
     Route: 043

REACTIONS (5)
  - Renal tuberculosis [Unknown]
  - Pyrexia [Unknown]
  - Lymphadenopathy [Unknown]
  - Haematuria [Unknown]
  - Granuloma [Unknown]
